FAERS Safety Report 11140223 (Version 1)
Quarter: 2015Q2

REPORT INFORMATION
  Report Type: Spontaneous
  Country: US (occurrence: US)
  Receive Date: 20150525
  Receipt Date: 20150525
  Transmission Date: 20150821
  Serious: No
  Sender: FDA-Public Use
  Company Number: US-JNJFOC-20140923192

PATIENT
  Sex: Male
  Weight: 109.32 kg

DRUGS (1)
  1. RISPERDAL [Suspect]
     Active Substance: RISPERIDONE
     Indication: PSYCHOTIC DISORDER
     Route: 048

REACTIONS (5)
  - Hallucination [Unknown]
  - Delusion [Not Recovered/Not Resolved]
  - Gynaecomastia [Unknown]
  - Agitation [Unknown]
  - Toothache [Recovered/Resolved]
